FAERS Safety Report 10514138 (Version 1)
Quarter: 2014Q4

REPORT INFORMATION
  Report Type: Spontaneous
  Country: CH (occurrence: CH)
  Receive Date: 20141013
  Receipt Date: 20141013
  Transmission Date: 20150528
  Serious: Yes (Life-Threatening, Disabling, Other)
  Sender: FDA-Public Use
  Company Number: CH-ELI_LILLY_AND_COMPANY-CH201410002429

PATIENT
  Age: 50 Year
  Sex: Male
  Weight: 56 kg

DRUGS (20)
  1. PRAZINE [Suspect]
     Active Substance: PROMAZINE HYDROCHLORIDE
     Dosage: 150 MG, QD
     Route: 048
     Dates: start: 20140622, end: 20140622
  2. CLOZAPINE. [Concomitant]
     Active Substance: CLOZAPINE
  3. HALDOL [Suspect]
     Active Substance: HALOPERIDOL
     Dosage: 5 MG, QD
     Route: 048
     Dates: start: 20140530, end: 20140602
  4. VALIUM [Concomitant]
     Active Substance: DIAZEPAM
     Indication: PRODUCT USED FOR UNKNOWN INDICATION
     Dosage: 10-20MG, QD
     Route: 048
     Dates: start: 20140522, end: 20140528
  5. AKINETON [Concomitant]
     Active Substance: BIPERIDEN HYDROCHLORIDE
     Dosage: 6 MG, QD
     Route: 048
     Dates: start: 20140616, end: 20140617
  6. PRAZINE [Suspect]
     Active Substance: PROMAZINE HYDROCHLORIDE
     Indication: SCHIZOPHRENIA
     Dosage: 50 MG, QD
     Route: 048
     Dates: start: 20140617, end: 20140619
  7. RISPERIDON [Concomitant]
     Active Substance: RISPERIDONE
     Indication: PRODUCT USED FOR UNKNOWN INDICATION
     Dosage: UNK UNK, QD
     Route: 048
     Dates: start: 20140530, end: 20140611
  8. AKINETON [Concomitant]
     Active Substance: BIPERIDEN HYDROCHLORIDE
     Dosage: 4 MG, QD
     Route: 048
     Dates: start: 20140618, end: 20140618
  9. AKINETON [Concomitant]
     Active Substance: BIPERIDEN HYDROCHLORIDE
     Indication: PRODUCT USED FOR UNKNOWN INDICATION
     Dosage: 2 MG, QD
     Route: 048
     Dates: start: 20140611, end: 20140615
  10. ZYPREXA [Suspect]
     Active Substance: OLANZAPINE
     Dosage: 15 MG, QD
     Route: 048
     Dates: start: 20140618, end: 20140618
  11. ZYPREXA [Suspect]
     Active Substance: OLANZAPINE
     Dosage: 10 MG, QD
     Route: 048
     Dates: start: 20140624, end: 20140624
  12. PIPAMPERONE [Concomitant]
     Active Substance: PIPAMPERONE
     Dosage: 80 MG, QD
     Dates: start: 20140624
  13. HALDOL [Suspect]
     Active Substance: HALOPERIDOL
     Indication: SCHIZOPHRENIA
     Dosage: 15-20MG, QD
     Route: 048
     Dates: start: 20140522, end: 20140525
  14. HALDOL [Suspect]
     Active Substance: HALOPERIDOL
     Dosage: 10 MG, QD
     Route: 048
     Dates: start: 20140612, end: 20140616
  15. IMOVANE [Concomitant]
     Active Substance: ZOPICLONE
     Indication: PRODUCT USED FOR UNKNOWN INDICATION
     Dosage: 7.5 MG, QD
     Route: 048
     Dates: start: 20140611, end: 20140616
  16. SEROQUEL [Concomitant]
     Active Substance: QUETIAPINE FUMARATE
  17. ZYPREXA [Suspect]
     Active Substance: OLANZAPINE
     Indication: SCHIZOPHRENIA
     Dosage: 10 MG, QD
     Route: 048
     Dates: start: 20140616, end: 20140617
  18. HALDOL [Suspect]
     Active Substance: HALOPERIDOL
     Dosage: 10 MG, QD
     Route: 048
     Dates: start: 20140526, end: 20140529
  19. PRAZINE [Suspect]
     Active Substance: PROMAZINE HYDROCHLORIDE
     Dosage: 100 MG, QD
     Route: 048
     Dates: start: 20140620, end: 20140620
  20. VALIUM [Concomitant]
     Active Substance: DIAZEPAM
     Dosage: 10-20MG, QD
     Route: 048
     Dates: start: 20140612, end: 20140619

REACTIONS (7)
  - Pneumonia aspiration [Unknown]
  - Neurodegenerative disorder [Unknown]
  - Neuroleptic malignant syndrome [Recovered/Resolved with Sequelae]
  - Sepsis [Unknown]
  - Muscle atrophy [Unknown]
  - Status epilepticus [Unknown]
  - Temporal lobe epilepsy [Unknown]

NARRATIVE: CASE EVENT DATE: 201406
